FAERS Safety Report 8270217-7 (Version None)
Quarter: 2012Q2

REPORT INFORMATION
  Report Type: 
  Country: None (occurrence: None)
  Receive Date: 20120410
  Receipt Date: 20120403
  Transmission Date: 20120825
  Serious: Yes (Other)
  Sender: FDA-Public Use
  Company Number: PHEH2012US006063

PATIENT
  Sex: Female

DRUGS (3)
  1. SANDIMMUNE [Suspect]
     Dosage: 100 MG, TID
     Route: 048
  2. SANDIMMUNE [Suspect]
     Indication: MYASTHENIA GRAVIS
     Dosage: 100 MG, BID
     Route: 048
  3. CARDIZEM [Concomitant]
     Indication: HYPERTENSION

REACTIONS (2)
  - BLOOD CREATININE INCREASED [None]
  - MYASTHENIA GRAVIS [None]
